FAERS Safety Report 9099785 (Version 2)
Quarter: 2013Q2

REPORT INFORMATION
  Report Type: Spontaneous
  Country: US (occurrence: US)
  Receive Date: 20130214
  Receipt Date: 20130610
  Transmission Date: 20140414
  Serious: Yes (Other)
  Sender: FDA-Public Use
  Company Number: US-ASTRAZENECA-2013SE08546

PATIENT
  Age: 74 Year
  Sex: Female

DRUGS (8)
  1. OMEPRAZOLE [Suspect]
     Route: 048
  2. CAPRELSA [Suspect]
     Indication: MEDULLARY THYROID CANCER
     Route: 048
     Dates: start: 20120124
  3. CAPRELSA [Suspect]
     Indication: MEDULLARY THYROID CANCER
     Route: 048
  4. HCTZ [Suspect]
     Route: 065
  5. CALCIUM [Concomitant]
  6. LEVOTHYROXINE [Concomitant]
  7. POTASSIUM [Concomitant]
  8. SYNTHROID [Concomitant]

REACTIONS (3)
  - Electrocardiogram QT prolonged [Unknown]
  - Diarrhoea [Unknown]
  - Rash [Unknown]
